FAERS Safety Report 19402363 (Version 2)
Quarter: 2021Q2

REPORT INFORMATION
  Report Type: Spontaneous
  Country: US (occurrence: US)
  Receive Date: 20210611
  Receipt Date: 20210615
  Transmission Date: 20210717
  Serious: No
  Sender: FDA-Public Use
  Company Number: US-009507513-2106USA002279

PATIENT
  Age: 45 Year
  Sex: Male

DRUGS (3)
  1. GONADOTROPIN, CHORIONIC [Suspect]
     Active Substance: CHORIOGONADOTROPIN ALFA
     Dosage: 1ST, 2ND, 3RD BOTTLE
  2. STERILE DILUENT (WATER) [Suspect]
     Active Substance: WATER
     Dosage: 10 MILLILITER
  3. GONADOTROPIN, CHORIONIC [Suspect]
     Active Substance: CHORIOGONADOTROPIN ALFA
     Dosage: 4TH BOTTLE, 500 IU 3 TIMES PER WEEK
     Dates: start: 20210521

REACTIONS (2)
  - Intentional product misuse [Unknown]
  - Therapeutic response decreased [Not Recovered/Not Resolved]

NARRATIVE: CASE EVENT DATE: 20210521
